FAERS Safety Report 13718335 (Version 3)
Quarter: 2017Q3

REPORT INFORMATION
  Report Type: Spontaneous
  Country: CH (occurrence: CH)
  Receive Date: 20170705
  Receipt Date: 20170711
  Transmission Date: 20171127
  Serious: Yes (Hospitalization)
  Sender: FDA-Public Use
  Company Number: CH-PFIZER INC-2017282833

PATIENT
  Age: 31 Year
  Sex: Male

DRUGS (11)
  1. CISPLATIN. [Suspect]
     Active Substance: CISPLATIN
     Indication: TESTICULAR GERM CELL TUMOUR
     Dosage: 200 MG/M2, CYCLIC
     Route: 065
     Dates: start: 20170206
  2. ETOPOSID [Suspect]
     Active Substance: ETOPOSIDE
     Indication: TESTICULAR GERM CELL TUMOUR
     Dosage: 100 MG/M2, CYCLIC
     Dates: start: 20170206
  3. PASPERTIN /00041902/ [Suspect]
     Active Substance: METOCLOPRAMIDE HYDROCHLORIDE
     Dosage: 10 MG, 3X/DAY (1-1-1-0)
     Dates: start: 201702
  4. SOLU-MEDROL [Suspect]
     Active Substance: METHYLPREDNISOLONE SODIUM SUCCINATE
     Dosage: 80MG, THE PARTICULAR THERAPY WAS ALSO USED ON 13FEB2017
     Route: 065
     Dates: start: 20170206, end: 20170206
  5. SOLU-MEDROL [Suspect]
     Active Substance: METHYLPREDNISOLONE SODIUM SUCCINATE
     Dosage: UNK
     Dates: start: 20170213
  6. TEMESTA [Suspect]
     Active Substance: LORAZEPAM
     Dosage: 1MG, 1X/DAY (0-0-1-0)
     Route: 065
     Dates: start: 201702
  7. PASPERTIN /00041902/ [Suspect]
     Active Substance: METOCLOPRAMIDE HYDROCHLORIDE
     Dosage: 40 MG, AS NEEDED
     Dates: start: 20170206, end: 20170206
  8. OMEPRAZOL ACTAVIS [Suspect]
     Active Substance: OMEPRAZOLE
     Dosage: 20MG 1X/DAY (1-0-0-0)
     Dates: start: 201702
  9. PASPERTIN /00041902/ [Suspect]
     Active Substance: METOCLOPRAMIDE HYDROCHLORIDE
     Dosage: 30 MG, 3X/DAY
     Route: 065
     Dates: start: 201702
  10. BLEOMYCIN [Suspect]
     Active Substance: BLEOMYCIN SULFATE
     Indication: TESTICULAR GERM CELL TUMOUR
     Dosage: 30 MG, CYCLIC
     Dates: start: 20170206
  11. PASPERTIN /00041902/ [Suspect]
     Active Substance: METOCLOPRAMIDE HYDROCHLORIDE
     Dosage: 40 MG, AS NEEDED
     Dates: start: 20170213, end: 20170213

REACTIONS (5)
  - Pyrexia [Recovered/Resolved]
  - Gastrooesophageal reflux disease [Recovered/Resolved]
  - Diarrhoea [Recovered/Resolved]
  - Hiccups [Recovered/Resolved]
  - Neutropenia [Recovered/Resolved]

NARRATIVE: CASE EVENT DATE: 201702
